FAERS Safety Report 8809782 (Version 1)
Quarter: 2012Q4

REPORT INFORMATION
  Report Type: 
  Country: IN (occurrence: IN)
  Receive Date: 20120926
  Receipt Date: 20120926
  Transmission Date: 20130627
  Serious: Yes (Hospitalization)
  Sender: FDA-Public Use
  Company Number: IN-MYLANLABS-2012S1019328

PATIENT
  Sex: Female

DRUGS (5)
  1. DICLOFENAC [Suspect]
     Route: 064
  2. AMOXI-CLAVULANICO [Concomitant]
     Route: 064
  3. METRONIDAZOLE [Concomitant]
     Route: 064
  4. RANITIDINE [Concomitant]
     Route: 064
  5. PARACETAMOL [Concomitant]
     Dosage: 500mg (frequency not stated)
     Route: 064

REACTIONS (2)
  - Renal failure acute [Recovered/Resolved]
  - Exposure during pregnancy [Recovered/Resolved]
